FAERS Safety Report 13850725 (Version 4)
Quarter: 2017Q3

REPORT INFORMATION
  Report Type: Spontaneous
  Country: US (occurrence: US)
  Receive Date: 20170809
  Receipt Date: 20170822
  Transmission Date: 20171127
  Serious: Yes (Death, Hospitalization)
  Sender: FDA-Public Use
  Company Number: US-CELGENEUS-USA-20170701950

PATIENT
  Age: 70 Year
  Sex: Female

DRUGS (9)
  1. BIAXIN [Concomitant]
     Active Substance: CLARITHROMYCIN
     Route: 065
     Dates: start: 201307, end: 201406
  2. POMALYST [Suspect]
     Active Substance: POMALIDOMIDE
     Indication: PLASMA CELL MYELOMA
     Dosage: 4 MILLIGRAM
     Route: 048
     Dates: start: 201408
  3. POMALYST [Suspect]
     Active Substance: POMALIDOMIDE
     Dosage: 2 MILLIGRAM
     Route: 048
     Dates: start: 20161129
  4. BIAXIN [Concomitant]
     Active Substance: CLARITHROMYCIN
     Indication: PRODUCT USED FOR UNKNOWN INDICATION
     Route: 065
     Dates: start: 201109, end: 201205
  5. POMALYST [Suspect]
     Active Substance: POMALIDOMIDE
     Dosage: 4 MILLIGRAM
     Route: 048
     Dates: start: 201702
  6. BIAXIN [Concomitant]
     Active Substance: CLARITHROMYCIN
     Route: 065
     Dates: start: 201206, end: 201306
  7. BIAXIN [Concomitant]
     Active Substance: CLARITHROMYCIN
     Route: 065
     Dates: start: 201407, end: 201509
  8. POMALYST [Suspect]
     Active Substance: POMALIDOMIDE
     Dosage: 4 MILLIGRAM
     Route: 048
     Dates: start: 201705
  9. POMALYST [Suspect]
     Active Substance: POMALIDOMIDE
     Dosage: 2 MILLIGRAM
     Route: 048
     Dates: start: 201707

REACTIONS (5)
  - White blood cell count decreased [Not Recovered/Not Resolved]
  - Platelet count decreased [Not Recovered/Not Resolved]
  - Bacteraemia [Unknown]
  - Plasma cell myeloma [Fatal]
  - Cellulitis [Unknown]

NARRATIVE: CASE EVENT DATE: 20170509
